FAERS Safety Report 5118185-0 (Version None)
Quarter: 2006Q4

REPORT INFORMATION
  Report Type: 
  Country: None (occurrence: None)
  Receive Date: 20061002
  Receipt Date: 20060919
  Transmission Date: 20070319
  Serious: Yes (Other)
  Sender: FDA-Public Use
  Company Number: PHBS2006JP14583

PATIENT
  Age: 74 Year
  Sex: Female

DRUGS (3)
  1. DIOVAN [Suspect]
     Indication: HYPERTENSION
     Dosage: 80 MG/DAY
     Route: 048
     Dates: start: 20060915, end: 20060916
  2. LANIRAPID [Concomitant]
  3. BUFFERIN [Concomitant]

REACTIONS (1)
  - ATRIAL FIBRILLATION [None]
